FAERS Safety Report 8943881 (Version 4)
Quarter: 2013Q1

REPORT INFORMATION
  Report Type: Spontaneous
  Country: SE (occurrence: SE)
  Receive Date: 20121204
  Receipt Date: 20130115
  Transmission Date: 20140127
  Serious: Yes (Death, Hospitalization, Other)
  Sender: FDA-Public Use
  Company Number: SE-VERTEX PHARMACEUTICALS INC.-2012-025534

PATIENT
  Age: 48 None
  Sex: Male

DRUGS (4)
  1. INCIVO [Suspect]
     Indication: HEPATITIS C
     Dosage: UNK, QD (2.2 GM D)
     Route: 048
     Dates: start: 20120929, end: 20121007
  2. RIBAVIRIN [Suspect]
     Indication: HEPATITIS C
     Dosage: UNK
     Route: 065
  3. PEGINTRON [Suspect]
     Indication: HEPATITIS C
     Dosage: UNK
     Route: 065
     Dates: start: 20120928
  4. METFORMIN [Concomitant]
     Indication: DIABETES MELLITUS
     Route: 065

REACTIONS (8)
  - Colitis ischaemic [Unknown]
  - Pyrexia [Unknown]
  - Liver disorder [Unknown]
  - Intestinal gangrene [Not Recovered/Not Resolved]
  - Bacterial sepsis [Unknown]
  - Cerebral haemorrhage [Unknown]
  - Enterococcal sepsis [Unknown]
  - Death [Fatal]
